FAERS Safety Report 26006069 (Version 1)
Quarter: 2025Q4

REPORT INFORMATION
  Report Type: Spontaneous
  Country: US (occurrence: US)
  Receive Date: 20251106
  Receipt Date: 20251106
  Transmission Date: 20260117
  Serious: Yes (Hospitalization)
  Sender: MACLEODS
  Company Number: US-MACLEODS PHARMA-MAC2025056143

PATIENT

DRUGS (1)
  1. APIXABAN [Suspect]
     Active Substance: APIXABAN
     Indication: Atrial fibrillation
     Route: 065

REACTIONS (5)
  - Spontaneous haemorrhage [Recovering/Resolving]
  - Arterial rupture [Recovering/Resolving]
  - Peritoneal haematoma [Recovering/Resolving]
  - Renal atrophy [Recovering/Resolving]
  - Anaemia [Recovering/Resolving]
